FAERS Safety Report 14517929 (Version 14)
Quarter: 2021Q2

REPORT INFORMATION
  Report Type: Spontaneous
  Country: US (occurrence: US)
  Receive Date: 20180212
  Receipt Date: 20210527
  Transmission Date: 20210716
  Serious: Yes (Other)
  Sender: FDA-Public Use
  Company Number: US-PFIZER INC-2018057260

PATIENT
  Age: 57 Year
  Sex: Female
  Weight: 62 kg

DRUGS (6)
  1. FASLODEX [Concomitant]
     Active Substance: FULVESTRANT
     Indication: HORMONE RECEPTOR POSITIVE BREAST CANCER
     Dosage: 250 MG, MONTHLY (ONE SHOT IN EACH BUTT CHEEK)
  2. IBRANCE [Suspect]
     Active Substance: PALBOCICLIB
     Indication: BREAST CANCER METASTATIC
     Dosage: 125 MG
     Route: 048
  3. XGEVA [Concomitant]
     Active Substance: DENOSUMAB
     Indication: BREAST CANCER METASTATIC
     Dosage: UNK, MONTHLY
     Dates: start: 201711
  4. IBRANCE [Suspect]
     Active Substance: PALBOCICLIB
     Dosage: 100 MG, CYCLIC (DAILY FOR 21 DAYS, 7 DAYS OFF)
     Route: 048
     Dates: start: 201711
  5. FASLODEX [Concomitant]
     Active Substance: FULVESTRANT
     Indication: BREAST CANCER METASTATIC
     Dosage: UNK, MONTHLY
     Dates: start: 201711
  6. MORPHINE SULFATE. [Concomitant]
     Active Substance: MORPHINE SULFATE
     Indication: METASTASES TO SPINE
     Dosage: 15 MG, AS NEEDED (TAKES 1?2 EVERY 6 HOURS AS NEEDED)
     Route: 048
     Dates: start: 201711

REACTIONS (13)
  - Rheumatoid arthritis [Recovering/Resolving]
  - Bone lesion [Unknown]
  - Immune system disorder [Unknown]
  - Abdominal pain upper [Unknown]
  - Night sweats [Not Recovered/Not Resolved]
  - Sinusitis [Recovered/Resolved]
  - Malaise [Unknown]
  - Fatigue [Unknown]
  - Epistaxis [Unknown]
  - Feeling cold [Unknown]
  - Loss of personal independence in daily activities [Unknown]
  - Physical disability [Unknown]
  - Back pain [Unknown]

NARRATIVE: CASE EVENT DATE: 201802
